FAERS Safety Report 15945057 (Version 1)
Quarter: 2019Q1

REPORT INFORMATION
  Report Type: Report from Study
  Country: ZA (occurrence: ZA)
  Receive Date: 20190211
  Receipt Date: 20190211
  Transmission Date: 20190417
  Serious: Yes (Hospitalization, Other)
  Sender: FDA-Public Use
  Company Number: ZA-SA-2018SA191293

PATIENT
  Age: 77 Year
  Sex: Female

DRUGS (10)
  1. INSULIN GLARGINE [Suspect]
     Active Substance: INSULIN GLARGINE
     Indication: TYPE 2 DIABETES MELLITUS
     Dosage: BEDTIME-6 UNITS
     Dates: start: 20180618
  2. NEXIPRAZ [Concomitant]
     Active Substance: ESOMEPRAZOLE
     Dosage: BEFORE BREAKFAST-20 MG
     Dates: start: 20180619
  3. INDOBLOK [Concomitant]
     Active Substance: PROPRANOLOL HYDROCHLORIDE
     Dosage: BEFORE BREAKFAST- 40MG AND BEFORE SUPPER-40 MG
     Dates: start: 20180901
  4. ECOTRIN [Concomitant]
     Active Substance: ASPIRIN
     Dosage: AFETR BREAKFAST-81 MG
     Dates: start: 20180620
  5. CLOPIWIN [Concomitant]
     Active Substance: CLOPIDOGREL BISULFATE
     Dosage: BEFORE BREAKFAST-75 MG
     Dates: start: 20180619
  6. RIDAQ [Concomitant]
     Active Substance: HYDROCHLOROTHIAZIDE
     Dosage: BEFORER BREAKFAST-12.5 MG
     Dates: start: 20080101
  7. AMLOC [AMLODIPINE BESILATE] [Concomitant]
     Dosage: BEFORE BREAKFAST-5 MG
     Dates: start: 20080101
  8. ADCO GLUCOMED [Concomitant]
     Active Substance: GLICLAZIDE
     Dosage: BEFORE SUPPER-40 MG, BEFORE LUNCH-80 MG
     Dates: start: 20180626
  9. FERRIMED DS [Concomitant]
     Active Substance: IRON POLYMALTOSE
     Dosage: AFTER SUPPER-100 MG
     Dates: start: 20180619
  10. ADCO-SIMVASTATIN [Concomitant]
     Active Substance: SIMVASTATIN
     Dosage: AFTER SUPPER-10 MG
     Dates: start: 20180301

REACTIONS (10)
  - Weight gain poor [Not Recovered/Not Resolved]
  - Goitre [Not Recovered/Not Resolved]
  - Blood glucose fluctuation [Not Recovered/Not Resolved]
  - Thyroidectomy [Unknown]
  - Infection [Recovered/Resolved]
  - Hypothyroidism [Not Recovered/Not Resolved]
  - Feeling hot [Not Recovered/Not Resolved]
  - Hypoglycaemia [Recovered/Resolved]
  - Thyroid function test [Not Recovered/Not Resolved]
  - Cardiac disorder [Recovered/Resolved]

NARRATIVE: CASE EVENT DATE: 20180702
